FAERS Safety Report 21300681 (Version 2)
Quarter: 2022Q3

REPORT INFORMATION
  Report Type: Report from Study
  Country: CO (occurrence: CO)
  Receive Date: 20220907
  Receipt Date: 20220926
  Transmission Date: 20221027
  Serious: Yes (Hospitalization)
  Sender: FDA-Public Use
  Company Number: CO-BRISTOL-MYERS SQUIBB COMPANY-BMS-2022-020916

PATIENT
  Age: 58 Year
  Sex: Male
  Weight: 60 kg

DRUGS (1)
  1. NIVOLUMAB [Suspect]
     Active Substance: NIVOLUMAB
     Indication: Renal cancer
     Dosage: 200 MILLIGARM, EVERY 15 DAYS
     Route: 042
     Dates: start: 20220208, end: 20220715

REACTIONS (5)
  - Oxygen saturation decreased [Unknown]
  - Dyspnoea [Unknown]
  - Back pain [Unknown]
  - Decreased appetite [Unknown]
  - Intentional product use issue [Unknown]

NARRATIVE: CASE EVENT DATE: 20220208
